FAERS Safety Report 20201774 (Version 1)
Quarter: 2021Q4

REPORT INFORMATION
  Report Type: Spontaneous
  Country: US (occurrence: US)
  Receive Date: 20211217
  Receipt Date: 20211217
  Transmission Date: 20220303
  Serious: Yes (Death, Other)
  Sender: FDA-Public Use
  Company Number: US-GILEAD-2021-0562096

PATIENT
  Age: 68 Year
  Sex: Male

DRUGS (1)
  1. BIKTARVY [Suspect]
     Active Substance: BICTEGRAVIR SODIUM\EMTRICITABINE\TENOFOVIR ALAFENAMIDE FUMARATE
     Indication: HIV infection
     Dosage: 200/50/25 MG TAKEN ONCE DAILY BY MOUTH
     Route: 048
     Dates: start: 20200304, end: 20211005

REACTIONS (1)
  - Death [Fatal]

NARRATIVE: CASE EVENT DATE: 20211215
